FAERS Safety Report 14020828 (Version 2)
Quarter: 2017Q4

REPORT INFORMATION
  Report Type: Report from Study
  Country: US (occurrence: US)
  Receive Date: 20170928
  Receipt Date: 20171005
  Transmission Date: 20180321
  Serious: Yes (Hospitalization)
  Sender: FDA-Public Use
  Company Number: US-JNJFOC-20170928584

PATIENT
  Age: 71 Year
  Sex: Male

DRUGS (5)
  1. IMBRUVICA [Suspect]
     Active Substance: IBRUTINIB
     Indication: CHRONIC LYMPHOCYTIC LEUKAEMIA
     Route: 048
     Dates: start: 20170127, end: 20170907
  2. FUROSEMIDE. [Concomitant]
     Active Substance: FUROSEMIDE
  3. HUMALIN [Concomitant]
     Active Substance: INSULIN NOS
  4. TAMSULOSIN [Concomitant]
     Active Substance: TAMSULOSIN
  5. HYDRALAZINE [Concomitant]
     Active Substance: HYDRALAZINE HYDROCHLORIDE

REACTIONS (6)
  - Tremor [Unknown]
  - Skin discolouration [Unknown]
  - Vomiting [Unknown]
  - Asthenia [Unknown]
  - Pyrexia [Unknown]
  - Penis disorder [Unknown]

NARRATIVE: CASE EVENT DATE: 20170915
